FAERS Safety Report 9390977 (Version 1)
Quarter: 2013Q3

REPORT INFORMATION
  Report Type: Spontaneous
  Country: TR (occurrence: TR)
  Receive Date: 20130709
  Receipt Date: 20130709
  Transmission Date: 20140515
  Serious: Yes (Hospitalization, Other)
  Sender: FDA-Public Use
  Company Number: TR-ROXANE LABORATORIES, INC.-2013-RO-01106RO

PATIENT
  Age: 13 Year
  Sex: Female

DRUGS (4)
  1. RAMIPRIL [Suspect]
     Indication: HYPERTENSION
  2. RAMIPRIL [Suspect]
     Indication: OBESITY
  3. LOSARTAN POTASSIUM W/HYDROCHLOROTHIAZIDE [Suspect]
     Indication: HYPERTENSION
  4. LOSARTAN POTASSIUM W/HYDROCHLOROTHIAZIDE [Suspect]
     Indication: OBESITY

REACTIONS (5)
  - Renal failure acute [Recovered/Resolved]
  - Depressed level of consciousness [Recovered/Resolved]
  - Oliguria [Recovered/Resolved]
  - Vomiting [Unknown]
  - Asthenia [Unknown]
